FAERS Safety Report 7419603-5 (Version None)
Quarter: 2011Q2

REPORT INFORMATION
  Report Type: 
  Country: None (occurrence: None)
  Receive Date: 20110418
  Receipt Date: 20110407
  Transmission Date: 20111010
  Serious: Yes (Death)
  Sender: FDA-Public Use
  Company Number: GB-NOVOPROD-325598

PATIENT
  Sex: Male
  Weight: 103.8 kg

DRUGS (7)
  1. DIGOXIN [Concomitant]
     Indication: ATRIAL FIBRILLATION
     Dosage: 250 UG, QD
     Route: 048
     Dates: start: 19850801
  2. METFORMIN [Concomitant]
     Indication: DIABETES MELLITUS
     Dosage: 1500 G, QD
     Dates: start: 20070201
  3. WARFARIN [Concomitant]
     Indication: ATRIAL FIBRILLATION
     Dosage: 6 MG, QD ALTERNATE DAYS
     Route: 048
     Dates: start: 20080213
  4. WARFARIN [Concomitant]
     Dosage: 7 MG, QD ALTERNATE DAYS
     Route: 048
     Dates: start: 20080213
  5. FUMADERM                           /01273301/ [Concomitant]
     Indication: PSORIASIS
     Dosage: 2 TAB, QD
     Route: 048
     Dates: start: 20101030
  6. VICTOZA [Suspect]
     Indication: TYPE 2 DIABETES MELLITUS
     Dosage: 1.2 MG, QD
     Route: 058
     Dates: start: 20101029
  7. TELMISARTAN [Concomitant]
     Indication: HYPERTENSION
     Dosage: 80 MG, QD
     Route: 048
     Dates: start: 20060721

REACTIONS (1)
  - SUDDEN DEATH [None]
